FAERS Safety Report 23972349 (Version 2)
Quarter: 2025Q3

REPORT INFORMATION
  Report Type: Spontaneous
  Country: US (occurrence: US)
  Receive Date: 20240613
  Receipt Date: 20250710
  Transmission Date: 20251021
  Serious: No
  Sender: SANOFI AVENTIS
  Company Number: US-SA-SAC20240605000654

PATIENT
  Sex: Female
  Weight: 88 kg

DRUGS (7)
  1. KEVZARA [Suspect]
     Active Substance: SARILUMAB
     Indication: Rheumatoid arthritis
     Dosage: 200 MG, QOW
     Route: 058
     Dates: start: 202306, end: 202401
  2. METHOTREXATE [Concomitant]
     Active Substance: METHOTREXATE
  3. CURCUMIN [Concomitant]
     Active Substance: CURCUMIN
  4. MAGNESIUM GLUCONATE [Concomitant]
     Active Substance: MAGNESIUM GLUCONATE
  5. VITAMIN D3 [Concomitant]
     Active Substance: CHOLECALCIFEROL
  6. EMPRESSIN [ARGIPRESSIN] [Concomitant]
  7. VITAMINS [Concomitant]
     Active Substance: VITAMINS
     Dosage: UNK UNK, QD

REACTIONS (5)
  - COVID-19 [Recovering/Resolving]
  - Pain [Recovering/Resolving]
  - Influenza [Recovering/Resolving]
  - Respiratory tract infection [Recovering/Resolving]
  - Hepatic enzyme increased [Unknown]
